FAERS Safety Report 7098451-2 (Version None)
Quarter: 2010Q4

REPORT INFORMATION
  Report Type: 
  Country: None (occurrence: None)
  Receive Date: 20101110
  Receipt Date: 20101110
  Transmission Date: 20110411
  Serious: Yes (Other)
  Sender: FDA-Public Use
  Company Number: None

PATIENT
  Sex: Male

DRUGS (2)
  1. OXYCONTIN [Suspect]
     Indication: PAIN
     Dosage: 1 TAB -80MG- THREE TIMES DAILY PO
     Route: 048
     Dates: start: 20100915, end: 20101104
  2. OXYCONTIN [Suspect]
     Indication: PAIN
     Dosage: 1 TAB -20MG- THREE TIMES DAILY PO
     Route: 048
     Dates: start: 20100915, end: 20101104

REACTIONS (4)
  - DRUG INEFFECTIVE [None]
  - MEDICATION RESIDUE [None]
  - PAIN [None]
  - PRODUCT FORMULATION ISSUE [None]
